FAERS Safety Report 5207210-4 (Version None)
Quarter: 2007Q1

REPORT INFORMATION
  Report Type: 
  Country: None (occurrence: None)
  Receive Date: 20070112
  Receipt Date: 20070108
  Transmission Date: 20070707
  Serious: Yes (Hospitalization)
  Sender: FDA-Public Use
  Company Number: FR-GLAXOSMITHKLINE-B0453475A

PATIENT
  Age: 49 Year
  Sex: Female

DRUGS (5)
  1. NARAMIG [Suspect]
     Indication: MIGRAINE
     Route: 048
     Dates: end: 20050321
  2. ASPEGIC 1000 [Suspect]
     Dosage: 5G WEEKLY
     Route: 048
     Dates: end: 20050321
  3. DOLIPRANE [Suspect]
     Dosage: 14G WEEKLY
     Route: 048
     Dates: end: 20050321
  4. IBUPROFEN [Suspect]
     Dosage: 1UNIT SIX TIMES PER DAY
     Route: 048
     Dates: end: 20050321
  5. ZOMIG [Suspect]
     Indication: MIGRAINE
     Route: 048
     Dates: end: 20050321

REACTIONS (3)
  - DRUG ABUSER [None]
  - DRUG WITHDRAWAL SYNDROME [None]
  - HEADACHE [None]
